FAERS Safety Report 19661315 (Version 1)
Quarter: 2021Q3

REPORT INFORMATION
  Report Type: Spontaneous
  Country: US (occurrence: US)
  Receive Date: 20210805
  Receipt Date: 20210805
  Transmission Date: 20211014
  Serious: No
  Sender: FDA-Public Use
  Company Number: US-PFIZER INC-2021857193

PATIENT
  Age: 67 Year
  Sex: Female

DRUGS (1)
  1. METHOTREXATE SODIUM. [Suspect]
     Active Substance: METHOTREXATE SODIUM
     Indication: BREAST CANCER FEMALE
     Dosage: 25 MG, WEEKLY

REACTIONS (8)
  - Axillary pain [Unknown]
  - Skin irritation [Unknown]
  - Contusion [Unknown]
  - Breast pain [Unknown]
  - Paraesthesia [Unknown]
  - Breast discomfort [Unknown]
  - Macule [Unknown]
  - Skin lesion [Unknown]
